FAERS Safety Report 9788796 (Version 2)
Quarter: 2014Q1

REPORT INFORMATION
  Report Type: Spontaneous
  Country: SE (occurrence: SE)
  Receive Date: 20131230
  Receipt Date: 20140225
  Transmission Date: 20141002
  Serious: Yes (Other)
  Sender: FDA-Public Use
  Company Number: PHHY2013SE143121

PATIENT
  Sex: Male

DRUGS (1)
  1. RITALIN [Suspect]
     Indication: OFF LABEL USE

REACTIONS (4)
  - Drug abuse [Unknown]
  - Injection site reaction [Unknown]
  - Drug administration error [Unknown]
  - Wrong technique in drug usage process [Unknown]
